FAERS Safety Report 10061640 (Version 1)
Quarter: 2014Q2

REPORT INFORMATION
  Report Type: Spontaneous
  Country: US (occurrence: None)
  Receive Date: 20140404
  Receipt Date: 20140404
  Transmission Date: 20141212
  Serious: Yes (Hospitalization)
  Sender: FDA-Public Use
  Company Number: None

PATIENT
  Age: 21 Year
  Sex: Male
  Weight: 83.01 kg

DRUGS (3)
  1. ABILIFY [Suspect]
     Indication: DEPRESSION
     Dosage: 1 1/2 PILL AT BEDTIME
     Route: 048
     Dates: start: 20140201, end: 20140401
  2. ABILIFY [Suspect]
     Indication: HEADACHE
     Dosage: 1 1/2 PILL AT BEDTIME
     Route: 048
     Dates: start: 20140201, end: 20140401
  3. AMBIEN [Suspect]
     Indication: SLEEP DISORDER
     Dosage: 1/1 PILL AT BEDTIME
     Route: 048
     Dates: start: 20131122, end: 20131204

REACTIONS (1)
  - Suicidal ideation [None]
